FAERS Safety Report 4988323-9 (Version None)
Quarter: 2006Q2

REPORT INFORMATION
  Report Type: 
  Country: None (occurrence: None)
  Receive Date: 20060425
  Receipt Date: 20060403
  Transmission Date: 20061013
  Serious: Yes (Hospitalization, Other)
  Sender: FDA-Public Use
  Company Number: MAG-2006-0000428

PATIENT
  Age: 40 Year
  Sex: Female

DRUGS (4)
  1. THEOPHYLLINE [Suspect]
     Indication: ASTHMA
     Dosage: 40 TABLET, SINGLE, ORAL
     Route: 048
     Dates: start: 20060220, end: 20060220
  2. THEOPHYLLINE [Suspect]
     Indication: ASTHMA
     Dosage: 400 MG, DAILY, ORAL
     Route: 048
     Dates: start: 20051108, end: 20060219
  3. PRANLUKAST (PRANLUKAST) [Concomitant]
  4. TULOBUTEROL (TULOBUTEROL) [Concomitant]

REACTIONS (18)
  - ALANINE AMINOTRANSFERASE INCREASED [None]
  - ARRHYTHMIA [None]
  - ASPARTATE AMINOTRANSFERASE INCREASED [None]
  - ASPHYXIA [None]
  - BLOOD CREATINE PHOSPHOKINASE INCREASED [None]
  - BLOOD POTASSIUM DECREASED [None]
  - DIALYSIS [None]
  - DRUG LEVEL INCREASED [None]
  - HEART RATE INCREASED [None]
  - INTENTIONAL DRUG MISUSE [None]
  - INTENTIONAL OVERDOSE [None]
  - MYOGLOBIN BLOOD INCREASED [None]
  - NAUSEA [None]
  - PALPITATIONS [None]
  - RESPIRATORY ARREST [None]
  - TONIC CONVULSION [None]
  - VOMITING [None]
  - WHITE BLOOD CELL COUNT INCREASED [None]
